FAERS Safety Report 13906442 (Version 1)
Quarter: 2017Q3

REPORT INFORMATION
  Report Type: Spontaneous
  Country: MA (occurrence: MA)
  Receive Date: 20170825
  Receipt Date: 20170825
  Transmission Date: 20171127
  Serious: Yes (Death, Life-Threatening, Other)
  Sender: FDA-Public Use
  Company Number: PHHY2017MA117161

PATIENT
  Age: 43 Year

DRUGS (5)
  1. METHOTREXATE. [Suspect]
     Active Substance: METHOTREXATE
     Indication: LYMPHOMA
     Route: 065
  2. ETOPOSIDE. [Suspect]
     Active Substance: ETOPOSIDE
     Indication: LYMPHOMA
     Route: 065
  3. DEXAMETHASONE. [Suspect]
     Active Substance: DEXAMETHASONE
     Indication: LYMPHOMA
     Route: 065
  4. L ASPARAGINASE [Suspect]
     Active Substance: ASPARAGINASE
     Indication: LYMPHOMA
     Route: 065
  5. IFOSFAMIDE. [Suspect]
     Active Substance: IFOSFAMIDE
     Indication: LYMPHOMA
     Route: 065

REACTIONS (5)
  - Haematotoxicity [Unknown]
  - Mucosal toxicity [Unknown]
  - Toxicity to various agents [Unknown]
  - Disease progression [Fatal]
  - Treatment failure [Fatal]
